FAERS Safety Report 19840574 (Version 1)
Quarter: 2021Q3

REPORT INFORMATION
  Report Type: Spontaneous
  Country: IN (occurrence: IN)
  Receive Date: 20210915
  Receipt Date: 20210915
  Transmission Date: 20211014
  Serious: Yes (Death)
  Sender: FDA-Public Use
  Company Number: IN-PFIZER INC-2021296444

PATIENT
  Age: 68 Year
  Sex: Female

DRUGS (6)
  1. INOTUZUMAB OZOGAMICIN [Suspect]
     Active Substance: INOTUZUMAB OZOGAMICIN
     Indication: ACUTE LYMPHOCYTIC LEUKAEMIA
     Dosage: 1 MG, 1X/DAY(DAILY)
     Route: 042
     Dates: start: 20210217
  2. INOTUZUMAB OZOGAMICIN [Suspect]
     Active Substance: INOTUZUMAB OZOGAMICIN
     Dosage: 1 MG, 1X/DAY
     Route: 042
     Dates: start: 20210311
  3. AVIL [PHENIRAMINE AMINOSALICYLATE] [Concomitant]
     Indication: PREMEDICATION
     Dosage: UNK
  4. HYDROCORTISONE. [Concomitant]
     Active Substance: HYDROCORTISONE
     Indication: PREMEDICATION
     Dosage: UNK
  5. INOTUZUMAB OZOGAMICIN [Suspect]
     Active Substance: INOTUZUMAB OZOGAMICIN
     Dosage: 1 MG, CYCLIC (DAY 1,8,15 X 3 CYCLES)
     Route: 042
     Dates: end: 20210903
  6. PCM [Concomitant]
     Active Substance: ACETAMINOPHEN
     Indication: PREMEDICATION
     Dosage: UNK

REACTIONS (2)
  - White blood cell count decreased [Unknown]
  - Death [Fatal]
